FAERS Safety Report 12445282 (Version 1)
Quarter: 2016Q2

REPORT INFORMATION
  Report Type: Spontaneous
  Country: TR (occurrence: TR)
  Receive Date: 20160607
  Receipt Date: 20160607
  Transmission Date: 20160815
  Serious: Yes (Hospitalization)
  Sender: FDA-Public Use
  Company Number: TR-ASTRAZENECA-2016SE59790

PATIENT
  Age: 74 Year
  Sex: Female

DRUGS (4)
  1. LITHIUM. [Interacting]
     Active Substance: LITHIUM
     Route: 065
  2. LEVODOPA+CARBIDOPA [Interacting]
     Active Substance: CARBIDOPA\LEVODOPA
     Dosage: 250 MG LEVODOPA WITH 25 MG CARBIDOPA TWICE DAILY
  3. SEROQUEL [Suspect]
     Active Substance: QUETIAPINE FUMARATE
     Indication: BIPOLAR DISORDER
     Route: 048
  4. VALSARTAN AND HYDROCHLORTHIAZIDE [Interacting]
     Active Substance: HYDROCHLOROTHIAZIDE\VALSARTAN
     Dosage: 160 MG VALSARTAN WITH 25 MG HCTZ ONCE DAILY

REACTIONS (8)
  - Toxicity to various agents [Recovered/Resolved]
  - Mental status changes [None]
  - Muscle rigidity [None]
  - Unresponsive to stimuli [None]
  - Muscle contractions involuntary [None]
  - Stupor [None]
  - Drug interaction [Recovered/Resolved]
  - Blood pressure increased [None]
